FAERS Safety Report 12135829 (Version 4)
Quarter: 2017Q1

REPORT INFORMATION
  Report Type: Spontaneous
  Country: IT (occurrence: IT)
  Receive Date: 20160302
  Receipt Date: 20170103
  Transmission Date: 20170428
  Serious: Yes (Other)
  Sender: FDA-Public Use
  Company Number: IT-AMGEN-ITASP2016024685

PATIENT
  Age: 61 Year
  Sex: Female

DRUGS (9)
  1. AULIN [Concomitant]
     Active Substance: NIMESULIDE
     Dosage: 100 MG, UNK
     Route: 048
  2. TACHIPIRINA [Concomitant]
     Active Substance: ACETAMINOPHEN
     Dosage: 2 DF, UNK
     Route: 048
  3. GIANT [Concomitant]
     Active Substance: AMLODIPINE BESYLATE\OLMESARTAN MEDOXOMIL
     Indication: HYPERTENSION
     Dosage: 10
     Route: 048
  4. ENBREL [Suspect]
     Active Substance: ETANERCEPT
     Indication: RHEUMATOID ARTHRITIS
     Dosage: 50 MG, WEEKLY
     Route: 058
     Dates: start: 20150819
  5. CALCIUM CARBONATE. [Concomitant]
     Active Substance: CALCIUM CARBONATE
     Dosage: 1 G, UNK
     Route: 048
  6. MEDROL [Concomitant]
     Active Substance: METHYLPREDNISOLONE
     Dosage: 4 MG, UNK
     Route: 048
  7. DIBASE [Concomitant]
     Active Substance: CHOLECALCIFEROL
     Indication: VITAMIN D DEFICIENCY
     Dosage: 1 DF, UNK
     Route: 048
  8. CALCIUM CARBONATE. [Concomitant]
     Active Substance: CALCIUM CARBONATE
     Dosage: 1 G, UNK
     Route: 048
  9. LIMPIDEX [Concomitant]
     Active Substance: LANSOPRAZOLE
     Dosage: 15 MG, UNK
     Route: 048

REACTIONS (4)
  - Depression [Unknown]
  - Diarrhoea [Unknown]
  - Urinary tract infection [Unknown]
  - Haemorrhage urinary tract [Unknown]

NARRATIVE: CASE EVENT DATE: 20151203
